FAERS Safety Report 9785672 (Version 1)
Quarter: 2013Q4

REPORT INFORMATION
  Report Type: Spontaneous
  Country: FR (occurrence: None)
  Receive Date: 20131223
  Receipt Date: 20131223
  Transmission Date: 20140711
  Serious: Yes (Other)
  Sender: FDA-Public Use
  Company Number: EUS-2012-00384

PATIENT
  Age: 5 Year
  Sex: Male

DRUGS (1)
  1. ERWINASE [Suspect]
     Route: 042
     Dates: start: 20120328, end: 20120328

REACTIONS (5)
  - Headache [None]
  - Abdominal pain [None]
  - Cough [None]
  - Erythema [None]
  - Pyrexia [None]
